FAERS Safety Report 4803821-6 (Version None)
Quarter: 2005Q3

REPORT INFORMATION
  Report Type: 
  Country: None (occurrence: None)
  Receive Date: 20050920
  Receipt Date: 20050505
  Transmission Date: 20060218
  Serious: No
  Sender: FDA-Public Use
  Company Number: US-YAMANOUCHI-YPA20050247

PATIENT
  Age: 76 Year
  Sex: Female
  Weight: 55.3388 kg

DRUGS (8)
  1. VESICARE [Suspect]
     Indication: HYPERTONIC BLADDER
     Dosage: 5 MG QD PO
     Route: 048
     Dates: start: 20050301, end: 20050501
  2. VESICARE [Suspect]
     Indication: INCONTINENCE
     Dosage: 5 MG QD PO
     Route: 048
     Dates: start: 20050301, end: 20050501
  3. VESICARE [Suspect]
     Indication: HYPERTONIC BLADDER
     Dosage: 5 MG EODAY PO
     Route: 048
     Dates: start: 20050501, end: 20050101
  4. VESICARE [Suspect]
     Indication: INCONTINENCE
     Dosage: 5 MG EODAY PO
     Route: 048
     Dates: start: 20050501, end: 20050101
  5. ACTONEL [Concomitant]
  6. LUMIGAN [Concomitant]
  7. VESICARE [Suspect]
     Indication: HYPERTONIC BLADDER
     Dosage: 5 MG QD PO
     Route: 048
     Dates: start: 20050101
  8. VESICARE [Suspect]
     Indication: INCONTINENCE
     Dosage: 5 MG QD PO
     Route: 048
     Dates: start: 20050101

REACTIONS (2)
  - CONSTIPATION [None]
  - VISION BLURRED [None]
